FAERS Safety Report 6373073-7 (Version None)
Quarter: 2009Q3

REPORT INFORMATION
  Report Type: 
  Country: None (occurrence: None)
  Receive Date: 20090924
  Receipt Date: 20090617
  Transmission Date: 20100115
  Serious: No
  Sender: FDA-Public Use
  Company Number: US-ASTRAZENECA-2009UW03707

PATIENT
  Age: 14 Year
  Sex: Female
  Weight: 61.2 kg

DRUGS (2)
  1. SEROQUEL [Suspect]
     Indication: ATTENTION DEFICIT/HYPERACTIVITY DISORDER
     Route: 048
  2. CONCERTA [Concomitant]

REACTIONS (3)
  - DIABETES MELLITUS [None]
  - HYPERTENSION [None]
  - OBESITY [None]
